FAERS Safety Report 8116421-X (Version None)
Quarter: 2012Q1

REPORT INFORMATION
  Report Type: 
  Country: None (occurrence: None)
  Receive Date: 20120206
  Receipt Date: 20120202
  Transmission Date: 20120608
  Serious: Yes (Other)
  Sender: FDA-Public Use
  Company Number: US-PFIZER INC-2012029557

PATIENT
  Sex: Male
  Weight: 86.168 kg

DRUGS (4)
  1. METHYLPHENIDATE [Concomitant]
     Indication: ATTENTION DEFICIT/HYPERACTIVITY DISORDER
     Dosage: 20 MG, 2X/DAY
  2. EFFEXOR XR [Suspect]
     Indication: DEPRESSION
     Dosage: 75 MG, 1X/DAY
     Route: 048
     Dates: start: 20120120, end: 20120129
  3. CLONAZEPAM [Concomitant]
     Indication: ANXIETY
     Dosage: 2 MG, 3X/DAY
  4. EFFEXOR XR [Suspect]
     Dosage: 150 MG, 1X/DAY
     Route: 048
     Dates: start: 20120130, end: 20120130

REACTIONS (1)
  - AMNESIA [None]
